FAERS Safety Report 17803723 (Version 1)
Quarter: 2020Q2

REPORT INFORMATION
  Report Type: Spontaneous
  Country: DE (occurrence: DE)
  Receive Date: 20200519
  Receipt Date: 20200519
  Transmission Date: 20200714
  Serious: Yes (Death, Life-Threatening, Hospitalization, Other)
  Sender: FDA-Public Use
  Company Number: DE-MYLANLABS-2020M1048204

PATIENT
  Age: 75 Year
  Sex: Male

DRUGS (5)
  1. PIRFENIDONE. [Interacting]
     Active Substance: PIRFENIDONE
     Dosage: 801 MILLIGRAM, Q8H, PAUSED THE TREATMENT FOR 2 WEEKS
  2. PIRFENIDONE. [Interacting]
     Active Substance: PIRFENIDONE
     Dosage: 267 MILLIGRAM, Q8H
  3. PIRFENIDONE. [Interacting]
     Active Substance: PIRFENIDONE
     Dosage: 534 MILLIGRAM, Q8H
  4. ESOMEPRAZOLE. [Suspect]
     Active Substance: ESOMEPRAZOLE MAGNESIUM
     Indication: GASTROOESOPHAGEAL REFLUX DISEASE
     Dosage: 40 MILLIGRAM, QD
  5. PIRFENIDONE. [Interacting]
     Active Substance: PIRFENIDONE
     Indication: IDIOPATHIC PULMONARY FIBROSIS
     Dosage: 801 MILLIGRAM, Q8H

REACTIONS (7)
  - Acute hepatic failure [Unknown]
  - Drug-induced liver injury [Unknown]
  - Drug interaction [Unknown]
  - Sepsis [Fatal]
  - Escherichia infection [Fatal]
  - Multiple organ dysfunction syndrome [Fatal]
  - Lactic acidosis [Fatal]
